FAERS Safety Report 9346512 (Version 1)
Quarter: 2013Q2

REPORT INFORMATION
  Report Type: Spontaneous
  Country: NZ (occurrence: NZ)
  Receive Date: 20130613
  Receipt Date: 20130613
  Transmission Date: 20140414
  Serious: Yes (Other)
  Sender: FDA-Public Use
  Company Number: NZ-US-EMD SERONO, INC.-7215601

PATIENT
  Sex: Female

DRUGS (1)
  1. INTERFERON BETA [Suspect]
     Indication: PRODUCT USED FOR UNKNOWN INDICATION

REACTIONS (2)
  - Skin necrosis [Unknown]
  - Injection site inflammation [Unknown]
